FAERS Safety Report 25962088 (Version 1)
Quarter: 2025Q4

REPORT INFORMATION
  Report Type: Spontaneous
  Country: US (occurrence: US)
  Receive Date: 20251027
  Receipt Date: 20251027
  Transmission Date: 20260117
  Serious: No
  Sender: ROCHE
  Company Number: US-ROCHE-3140052

PATIENT
  Age: 33 Year
  Sex: Female

DRUGS (3)
  1. XOLAIR PFS [Suspect]
     Active Substance: OMALIZUMAB
     Indication: Chronic spontaneous urticaria
     Dosage: INJECT 300MG SUBCUTANEOUSLY EVERY 4 WEEK(S)
     Route: 058
  2. XOLAIR PFS [Suspect]
     Active Substance: OMALIZUMAB
     Indication: Idiopathic urticaria
     Route: 058
  3. XOLAIR PFS [Suspect]
     Active Substance: OMALIZUMAB
     Dosage: FORM STRENGTH: 300MG/2ML
     Route: 058

REACTIONS (2)
  - Urticaria [Unknown]
  - Feeling abnormal [Unknown]
